FAERS Safety Report 24265396 (Version 1)
Quarter: 2024Q3

REPORT INFORMATION
  Report Type: Spontaneous
  Country: FR (occurrence: FR)
  Receive Date: 20240829
  Receipt Date: 20240829
  Transmission Date: 20241017
  Serious: Yes (Death, Other)
  Sender: MERCK
  Company Number: FR-009507513-2408FRA010193

PATIENT
  Sex: Female

DRUGS (2)
  1. PEMBROLIZUMAB [Suspect]
     Active Substance: PEMBROLIZUMAB
     Indication: HER2 positive breast cancer
     Dosage: UNK
  2. TRASTUZUMAB [Suspect]
     Active Substance: TRASTUZUMAB
     Indication: HER2 positive breast cancer
     Dosage: UNK

REACTIONS (2)
  - Myasthenic syndrome [Fatal]
  - Product use in unapproved indication [Unknown]
